FAERS Safety Report 5905484-5 (Version None)
Quarter: 2008Q4

REPORT INFORMATION
  Report Type: 
  Country: None (occurrence: None)
  Receive Date: 20081002
  Receipt Date: 20080922
  Transmission Date: 20090506
  Serious: Yes (Other)
  Sender: FDA-Public Use
  Company Number: CA-JNJFOC-20080604795

PATIENT
  Sex: Male
  Weight: 130.5 kg

DRUGS (21)
  1. REMICADE [Suspect]
     Route: 042
  2. REMICADE [Suspect]
     Route: 042
  3. REMICADE [Suspect]
     Route: 042
  4. REMICADE [Suspect]
     Route: 042
  5. REMICADE [Suspect]
     Route: 042
  6. REMICADE [Suspect]
     Route: 042
  7. REMICADE [Suspect]
     Route: 042
  8. REMICADE [Suspect]
     Indication: PSORIASIS
     Route: 042
  9. DIOVAN [Concomitant]
  10. FENOFIBRATE [Concomitant]
  11. LYRICA [Concomitant]
  12. METOPROLOL TARTRATE [Concomitant]
  13. PLAVIX [Concomitant]
  14. PREVACID [Concomitant]
  15. SYMBICORT [Concomitant]
     Route: 055
  16. SYNTHROID [Concomitant]
  17. INSULIN GLARGINE [Concomitant]
  18. ZOPICIONE [Concomitant]
  19. CITALOPRAM [Concomitant]
  20. CADUET [Concomitant]
  21. INSULIN ASPART [Concomitant]

REACTIONS (3)
  - ANOREXIA [None]
  - HEPATIC ENZYME INCREASED [None]
  - WEIGHT DECREASED [None]
